FAERS Safety Report 23836357 (Version 1)
Quarter: 2024Q2

REPORT INFORMATION
  Report Type: Spontaneous
  Country: DE (occurrence: DE)
  Receive Date: 20240509
  Receipt Date: 20240509
  Transmission Date: 20240716
  Serious: Yes (Hospitalization, Other)
  Sender: FDA-Public Use
  Company Number: None

PATIENT
  Age: 92 Year
  Sex: Male

DRUGS (9)
  1. SPIRONOLACTONE [Suspect]
     Active Substance: SPIRONOLACTONE
     Indication: Hypokalaemia
     Dosage: 1-0-0
     Route: 048
     Dates: end: 20240407
  2. INSULIN LISPRO [Concomitant]
     Active Substance: INSULIN LISPRO
     Dosage: FREQ:6 H;1-1-1-1
     Route: 058
  3. AMLODIPINE [Concomitant]
     Active Substance: AMLODIPINE BESYLATE
     Dosage: FREQ:0.5 D;1-0-1; USE FOR AT LEAST 3 MONTHS, PROBABLY MUCH LONGER
     Route: 048
     Dates: end: 20240409
  4. PREGABALIN [Concomitant]
     Active Substance: PREGABALIN
     Dosage: 0-0-1; USE FOR AT LEAST 3 MONTHS, PROBABLY MUCH LONGER
     Route: 048
     Dates: end: 20240408
  5. TAMSULOSIN [Concomitant]
     Active Substance: TAMSULOSIN
     Dosage: 0-0-1; USE FOR AT LEAST 3 MONTHS, PROBABLY MUCH LONGER
     Route: 048
     Dates: end: 20240408
  6. PANTOPRAZOLE [Concomitant]
     Active Substance: PANTOPRAZOLE
     Dosage: 1-0-0;USE FOR AT LEAST 3 MONTHS, PROBABLY MUCH LONGER
     Route: 048
     Dates: end: 20240409
  7. ATORVASTATIN [Concomitant]
     Active Substance: ATORVASTATIN
     Dosage: 0-0-1; USE FOR AT LEAST 3 MONTHS, PROBABLY MUCH LONGER
     Route: 048
     Dates: end: 20240408
  8. PIPERACILLIN AND TAZOBACTAM [Concomitant]
     Active Substance: PIPERACILLIN SODIUM\TAZOBACTAM SODIUM
     Indication: Infection
     Dosage: FREQ:8 H;1-1-1
     Route: 042
     Dates: start: 20240403, end: 20240409
  9. ELIQUIS [Concomitant]
     Active Substance: APIXABAN
     Dosage: FREQ0:.5 D;1-0-1 USE FOR AT LEAST 3 MONTHS, PROBABLY MUCH LONGER ( YEARS)
     Route: 048
     Dates: end: 20240409

REACTIONS (3)
  - Neutropenia [Not Recovered/Not Resolved]
  - Agranulocytosis [Not Recovered/Not Resolved]
  - Off label use [Unknown]

NARRATIVE: CASE EVENT DATE: 20240409
